FAERS Safety Report 9353093 (Version 1)
Quarter: 2013Q2

REPORT INFORMATION
  Report Type: Spontaneous
  Country: FR (occurrence: FR)
  Receive Date: 20130618
  Receipt Date: 20130618
  Transmission Date: 20140414
  Serious: Yes (Hospitalization)
  Sender: FDA-Public Use
  Company Number: FR-JNJFOC-20130607767

PATIENT
  Age: 43 Year
  Sex: Male

DRUGS (1)
  1. XARELTO [Suspect]
     Indication: THROMBOSIS
     Route: 048

REACTIONS (1)
  - Anaemia [Unknown]
